FAERS Safety Report 6427343-4 (Version None)
Quarter: 2009Q4

REPORT INFORMATION
  Report Type: 
  Country: None (occurrence: None)
  Receive Date: 20091104
  Receipt Date: 20091029
  Transmission Date: 20100525
  Serious: Yes (Other)
  Sender: FDA-Public Use
  Company Number: FR-TEVA-206231ISR

PATIENT
  Sex: Female

DRUGS (3)
  1. COPAXONE [Suspect]
     Indication: MULTIPLE SCLEROSIS
     Route: 058
     Dates: start: 20080801, end: 20090523
  2. ISOPTIN SR [Concomitant]
     Indication: OBSTRUCTION GASTRIC
     Route: 048
     Dates: start: 20060101
  3. ESOMEPRAZOLE MAGNESIUM [Concomitant]
     Indication: HIATUS HERNIA
     Route: 048
     Dates: start: 20050101

REACTIONS (1)
  - URTICARIA [None]
